FAERS Safety Report 18667721 (Version 2)
Quarter: 2020Q4

REPORT INFORMATION
  Report Type: Report from Study
  Country: US (occurrence: US)
  Receive Date: 20201228
  Receipt Date: 20201230
  Transmission Date: 20210114
  Serious: No
  Sender: FDA-Public Use
  Company Number: NVSC2020US337972

PATIENT
  Age: 22 Year
  Sex: Female

DRUGS (1)
  1. MAYZENT [Suspect]
     Active Substance: SIPONIMOD
     Indication: PRODUCT USED FOR UNKNOWN INDICATION
     Dosage: 0.25 MG
     Route: 048
     Dates: start: 20201217

REACTIONS (4)
  - Balance disorder [Unknown]
  - Heart rate decreased [Recovered/Resolved]
  - Dizziness [Unknown]
  - Headache [Recovered/Resolved]

NARRATIVE: CASE EVENT DATE: 20201217
